FAERS Safety Report 5801750-2 (Version None)
Quarter: 2008Q2

REPORT INFORMATION
  Report Type: 
  Country: None (occurrence: None)
  Receive Date: 20080626
  Receipt Date: 20080121
  Transmission Date: 20081010
  Serious: Yes (Hospitalization)
  Sender: FDA-Public Use
  Company Number: 542457

PATIENT
  Age: 78 Year
  Sex: Male

DRUGS (3)
  1. XELODA [Suspect]
     Indication: COLORECTAL CANCER METASTATIC
     Dosage: 2000 MG DAILY
  2. UNSPECIFIED DRUG (GENERIC UNKNOWN) [Concomitant]
  3. UNSPECIFIED DRUG (GENERIC UNKNOWN) [Concomitant]

REACTIONS (4)
  - ARRHYTHMIA [None]
  - DIARRHOEA [None]
  - HYPOTENSION [None]
  - RENAL FAILURE [None]
